FAERS Safety Report 12690199 (Version 5)
Quarter: 2018Q3

REPORT INFORMATION
  Report Type: Report from Study
  Country: US (occurrence: US)
  Receive Date: 20160826
  Receipt Date: 20180912
  Transmission Date: 20181010
  Serious: Yes (Hospitalization)
  Sender: FDA-Public Use
  Company Number: US-ACTELION-A-NJ2016-141053

PATIENT
  Age: 66 Year
  Sex: Female

DRUGS (17)
  1. GLIPIZIDE. [Concomitant]
     Active Substance: GLIPIZIDE
  2. PRILOSEC [Concomitant]
     Active Substance: OMEPRAZOLE MAGNESIUM
     Dosage: 20 MG, UNK
  3. TESSALON [Concomitant]
     Active Substance: BENZONATATE
  4. XARELTO [Concomitant]
     Active Substance: RIVAROXABAN
     Dosage: 10 MG, UNK
  5. PHENERGAN [Concomitant]
     Active Substance: PROMETHAZINE HYDROCHLORIDE
  6. GLUCOSE [Concomitant]
     Active Substance: DEXTROSE
  7. OPSUMIT [Suspect]
     Active Substance: MACITENTAN
     Indication: PULMONARY ARTERIAL HYPERTENSION
     Dosage: 10 MG, QD
     Route: 048
     Dates: start: 20150121
  8. LASIX [Concomitant]
     Active Substance: FUROSEMIDE
     Dosage: 20 MG, UNK
  9. METOPROLOL TARTRATE. [Concomitant]
     Active Substance: METOPROLOL TARTRATE
     Dosage: 50 MG, UNK
  10. LANTUS [Concomitant]
     Active Substance: INSULIN GLARGINE
  11. CALCIUM + VITAMIN D3 [Concomitant]
     Active Substance: CALCIUM CARBONATE\CHOLECALCIFEROL
  12. SIMVASTATIN. [Concomitant]
     Active Substance: SIMVASTATIN
  13. ATIVAN [Concomitant]
     Active Substance: LORAZEPAM
  14. VITAMIN E [Concomitant]
     Active Substance: .ALPHA.-TOCOPHEROL
  15. MULTIVITAMIN [Concomitant]
     Active Substance: VITAMINS
  16. TIKOSYN [Concomitant]
     Active Substance: DOFETILIDE
     Dosage: 125 MCG, UNK
  17. VITAMIN D3 [Concomitant]
     Active Substance: CHOLECALCIFEROL

REACTIONS (8)
  - Pulmonary oedema [Recovering/Resolving]
  - Bronchitis [Recovered/Resolved]
  - Chest discomfort [Not Recovered/Not Resolved]
  - Cough [Recovering/Resolving]
  - Drug dose omission [Recovering/Resolving]
  - Pneumonia [Recovered/Resolved]
  - Mouth haemorrhage [Not Recovered/Not Resolved]
  - Tooth extraction [Not Recovered/Not Resolved]

NARRATIVE: CASE EVENT DATE: 20160813
